FAERS Safety Report 26019419 (Version 1)
Quarter: 2025Q4

REPORT INFORMATION
  Report Type: Spontaneous
  Country: US (occurrence: US)
  Receive Date: 20251110
  Receipt Date: 20251110
  Transmission Date: 20260118
  Serious: No
  Sender: JOHNSON AND JOHNSON
  Company Number: US-JNJFOC-20251143322

PATIENT
  Age: 37 Year
  Sex: Female

DRUGS (4)
  1. SPRAVATO [Suspect]
     Active Substance: ESKETAMINE
     Indication: Product used for unknown indication
     Dates: start: 20251015, end: 20251017
  2. SPRAVATO [Suspect]
     Active Substance: ESKETAMINE
     Dates: start: 20251020, end: 20251029
  3. CLONOPIN [Concomitant]
     Active Substance: CLONAZEPAM
     Indication: Product used for unknown indication
  4. ADDERALL [Concomitant]
     Active Substance: AMPHETAMINE ASPARTATE\AMPHETAMINE SULFATE\DEXTROAMPHETAMINE SACCHARATE\DEXTROAMPHETAMINE SULFATE
     Indication: Attention deficit hyperactivity disorder

REACTIONS (20)
  - Product dose omission issue [Unknown]
  - Irritable bowel syndrome [Unknown]
  - Blood pressure abnormal [Unknown]
  - Depressed mood [Unknown]
  - Crying [Unknown]
  - Withdrawal syndrome [Unknown]
  - Irritability [Unknown]
  - Malaise [Unknown]
  - Disturbance in attention [Unknown]
  - Anger [Unknown]
  - Personality change [Unknown]
  - Disturbance in social behaviour [Unknown]
  - Stress [Unknown]
  - Executive dysfunction [Unknown]
  - Thinking abnormal [Unknown]
  - Frustration tolerance decreased [Unknown]
  - Abulia [Unknown]
  - Feeling abnormal [Unknown]
  - Depression [Unknown]
  - Post-traumatic stress disorder [Unknown]

NARRATIVE: CASE EVENT DATE: 20251103
